FAERS Safety Report 11641493 (Version 4)
Quarter: 2018Q3

REPORT INFORMATION
  Report Type: Spontaneous
  Country: US (occurrence: US)
  Receive Date: 20151019
  Receipt Date: 20180914
  Transmission Date: 20181010
  Serious: Yes (Hospitalization, Disabling, Other)
  Sender: FDA-Public Use
  Company Number: US-ENDO PHARMACEUTICALS INC.-2015-003383

PATIENT
  Age: 63 Year
  Sex: Male
  Weight: 99.77 kg

DRUGS (2)
  1. TESTIM [Suspect]
     Active Substance: TESTOSTERONE
     Indication: ANDROGEN REPLACEMENT THERAPY
     Dosage: UNK UNKNOWN, UNKNOWN
     Route: 062
     Dates: start: 2010, end: 2014
  2. ANDROGEL [Suspect]
     Active Substance: TESTOSTERONE
     Indication: ANDROGEN REPLACEMENT THERAPY
     Dosage: UNK UNKNOWN, UNKNOWN
     Route: 065
     Dates: start: 2010, end: 2014

REACTIONS (16)
  - Pulmonary embolism [Not Recovered/Not Resolved]
  - Infected dermal cyst [Unknown]
  - Cellulitis [Unknown]
  - Presyncope [Unknown]
  - Atrioventricular block first degree [Recovered/Resolved]
  - Transient ischaemic attack [Not Recovered/Not Resolved]
  - Hypokalaemia [Unknown]
  - Atrioventricular block complete [Unknown]
  - Pain [Unknown]
  - Cardiac failure congestive [Not Recovered/Not Resolved]
  - Hypomagnesaemia [Unknown]
  - Coronary artery disease [Unknown]
  - Myocardial infarction [Unknown]
  - Cerebrovascular accident [Not Recovered/Not Resolved]
  - Sinus node dysfunction [Unknown]
  - Myocardial infarction [Not Recovered/Not Resolved]

NARRATIVE: CASE EVENT DATE: 20121022
